FAERS Safety Report 8507722-1 (Version None)
Quarter: 2012Q3

REPORT INFORMATION
  Report Type: 
  Country: None (occurrence: None)
  Receive Date: 20120709
  Receipt Date: 20120709
  Transmission Date: 20120928
  Serious: Yes (Hospitalization)
  Sender: FDA-Public Use
  Company Number: None

PATIENT
  Age: 59 Year
  Sex: Male

DRUGS (1)
  1. GLEEVEC [Suspect]
     Dosage: 200MG TWICE DAILY PO
     Route: 048
     Dates: start: 20120514, end: 20120623

REACTIONS (2)
  - TOXICITY TO VARIOUS AGENTS [None]
  - LUNG DISORDER [None]
